FAERS Safety Report 19063198 (Version 1)
Quarter: 2021Q1

REPORT INFORMATION
  Report Type: Spontaneous
  Country: US (occurrence: US)
  Receive Date: 20210326
  Receipt Date: 20210326
  Transmission Date: 20210420
  Serious: Yes (Hospitalization)
  Sender: FDA-Public Use
  Company Number: US-FRESENIUS KABI-FK202103038

PATIENT
  Age: 44 Year
  Sex: Male

DRUGS (8)
  1. NORADRENALINE (MANUFACTURER UNKNOWN) [Suspect]
     Active Substance: NOREPINEPHRINE
     Indication: SEPTIC SHOCK
     Route: 065
  2. VASOPRESSIN. [Suspect]
     Active Substance: VASOPRESSIN
     Indication: SEPTIC SHOCK
     Dosage: ON DAY 1
     Route: 065
  3. HYDROCORTISONE. [Suspect]
     Active Substance: HYDROCORTISONE
     Indication: SEPTIC SHOCK
     Dosage: CONTINUOUS IV INFUSIONS ON DAY 1
     Route: 042
  4. BROAD SPECTRUM ANTIBIOTICS [Concomitant]
     Active Substance: UNSPECIFIED INGREDIENT
     Indication: PRODUCT USED FOR UNKNOWN INDICATION
     Dosage: UNSPECIFIED BROAD SPECTRUM ANTIBACTERIALS (ANTIBIOTICS)
     Route: 065
  5. HEPARIN [Concomitant]
     Active Substance: HEPARIN SODIUM
     Indication: ANTICOAGULANT THERAPY
     Dosage: ON HOSPITAL DAY 5
     Route: 065
  6. EPINEPHRINE. [Suspect]
     Active Substance: EPINEPHRINE
     Indication: SEPTIC SHOCK
     Dosage: IV INFUSIONS
     Route: 042
  7. HEPARIN [Concomitant]
     Active Substance: HEPARIN SODIUM
     Indication: PROPHYLAXIS
     Route: 065
  8. ANGIOTENSIN II ACETATE [Suspect]
     Active Substance: ANGIOTENSIN II ACETATE
     Indication: SEPTIC SHOCK
     Dosage: ANGIOTENSIN?II; CONTINUOUS INFUSION; INITIAL RATE OF 10 NG/KG/MIN
     Route: 065

REACTIONS (3)
  - Intestinal ischaemia [Unknown]
  - Condition aggravated [Unknown]
  - Abdominal pain [Unknown]
